FAERS Safety Report 23577949 (Version 2)
Quarter: 2024Q2

REPORT INFORMATION
  Report Type: Spontaneous
  Country: US (occurrence: US)
  Receive Date: 20240228
  Receipt Date: 20240408
  Transmission Date: 20240715
  Serious: Yes (Hospitalization, Other)
  Sender: FDA-Public Use
  Company Number: US-NOVOPROD-1180516

PATIENT
  Age: 29 Year
  Sex: Female
  Weight: 106.9 kg

DRUGS (7)
  1. SEMAGLUTIDE [Suspect]
     Active Substance: SEMAGLUTIDE
     Indication: Obesity
     Dosage: UNK
  2. ALTAVERA [Concomitant]
     Active Substance: ETHINYL ESTRADIOL\LEVONORGESTREL
     Indication: Product used for unknown indication
     Dosage: UNK
     Dates: start: 20230501
  3. DOXYCYCLINE [Concomitant]
     Active Substance: DOXYCYCLINE
     Indication: Nausea
     Dosage: UNK
     Dates: start: 20230618
  4. IBUPROFEN [Concomitant]
     Active Substance: IBUPROFEN
     Indication: Headache
     Dosage: UNK
     Dates: start: 2020
  5. ZOFRAN [Concomitant]
     Active Substance: ONDANSETRON HYDROCHLORIDE
     Indication: Nausea
     Dosage: UNK
     Dates: start: 20231209, end: 20240102
  6. BIFIDOBACTERIUM ANIMALIS LACTIS [Concomitant]
     Active Substance: BIFIDOBACTERIUM ANIMALIS LACTIS
     Indication: Prophylaxis
     Dosage: UNK
     Dates: start: 20230618, end: 20240202
  7. WEGOVY [Suspect]
     Active Substance: SEMAGLUTIDE
     Indication: Obesity

REACTIONS (1)
  - Obstructive pancreatitis [Recovered/Resolved]

NARRATIVE: CASE EVENT DATE: 20240121
